FAERS Safety Report 8389820 (Version 3)
Quarter: 2013Q2

REPORT INFORMATION
  Report Type: Spontaneous
  Country: US (occurrence: None)
  Receive Date: 20111221
  Receipt Date: 20121227
  Transmission Date: 20140414
  Serious: Yes (Hospitalization)
  Sender: FDA-Public Use
  Company Number: PHEH2010US01399

PATIENT
  Age: 27 Year
  Sex: Male
  Weight: 67.7 kg

DRUGS (3)
  1. EXJADE [Suspect]
     Indication: SICKLE CELL ANAEMIA
     Route: 048
     Dates: start: 200912
  2. EXJADE [Suspect]
     Indication: IRON OVERLOAD
     Route: 048
     Dates: start: 200912
  3. DESFERAL (DEFEROXAMINE MESILATE) [Concomitant]

REACTIONS (4)
  - SICKLE CELL ANAEMIA WITH CRISIS [None]
  - Renal failure [None]
  - Feeling jittery [None]
  - Headache [None]
